FAERS Safety Report 10574375 (Version 2)
Quarter: 2014Q4

REPORT INFORMATION
  Report Type: Spontaneous
  Country: US (occurrence: US)
  Receive Date: 20141110
  Receipt Date: 20141121
  Transmission Date: 20150529
  Serious: No
  Sender: FDA-Public Use
  Company Number: US-ASTRAZENECA-2014SE84730

PATIENT
  Age: 79 Year
  Sex: Female

DRUGS (1)
  1. VIMOVO [Suspect]
     Active Substance: ESOMEPRAZOLE MAGNESIUM\NAPROXEN
     Route: 048
     Dates: start: 20141021, end: 20141025

REACTIONS (4)
  - Dizziness [Unknown]
  - Dysmenorrhoea [Unknown]
  - Nausea [Unknown]
  - Balance disorder [Unknown]
